FAERS Safety Report 16464298 (Version 1)
Quarter: 2019Q2

REPORT INFORMATION
  Report Type: Spontaneous
  Country: CZ (occurrence: CZ)
  Receive Date: 20190621
  Receipt Date: 20190621
  Transmission Date: 20190711
  Serious: Yes (Other)
  Sender: FDA-Public Use
  Company Number: CZ-PROVELL PHARMACEUTICALS-2069458

PATIENT
  Sex: Female

DRUGS (3)
  1. EUTHYROX [Suspect]
     Active Substance: LEVOTHYROXINE SODIUM
     Indication: PRODUCT USED FOR UNKNOWN INDICATION
  2. CRINONE [Suspect]
     Active Substance: PROGESTERONE
  3. PREDNISON [Suspect]
     Active Substance: PREDNISONE

REACTIONS (4)
  - Uterine haemorrhage [None]
  - Abdominal pain lower [None]
  - Maternal exposure during pregnancy [None]
  - Abortion spontaneous [None]
